FAERS Safety Report 6771528-4 (Version None)
Quarter: 2010Q2

REPORT INFORMATION
  Report Type: 
  Country: None (occurrence: None)
  Receive Date: 20100616
  Receipt Date: 20100608
  Transmission Date: 20101027
  Serious: Yes (Hospitalization, Other)
  Sender: FDA-Public Use
  Company Number: FR-WYE-G06251110

PATIENT
  Sex: Female
  Weight: 70.4 kg

DRUGS (15)
  1. EFFEXOR [Suspect]
     Indication: DEPRESSION
     Dosage: 75 MG TOTAL DAILY
     Route: 048
     Dates: start: 20090101, end: 20091228
  2. DEXAMETHASONE [Suspect]
     Indication: MULTIPLE MYELOMA
     Dosage: 40 MG
     Dates: start: 20090922
  3. RIMIFON [Concomitant]
     Indication: ANTIBIOTIC PROPHYLAXIS
     Dosage: 300 MG
     Route: 048
     Dates: start: 20060101
  4. INIPOMP [Concomitant]
     Indication: PROPHYLAXIS
     Dosage: 40 MG
     Route: 048
     Dates: start: 20060101
  5. DI-ANTALVIC [Concomitant]
     Indication: BACK PAIN
     Route: 048
     Dates: start: 20080101
  6. FORLAX [Concomitant]
     Indication: CONSTIPATION
     Dosage: AS NEEDED
     Route: 048
     Dates: start: 20080101
  7. BISOPROLOL [Concomitant]
     Indication: ARRHYTHMIA
     Dosage: 10 MG
     Route: 048
     Dates: start: 20050101
  8. FLECAINIDE ACETATE [Concomitant]
     Indication: ARRHYTHMIA
     Dosage: 200 MG
     Route: 048
     Dates: start: 20050101
  9. TAHOR [Concomitant]
     Indication: HYPERCHOLESTEROLAEMIA
     Dosage: 10 MG
     Route: 048
     Dates: start: 20050101
  10. NEORECORMON [Concomitant]
     Indication: ANAEMIA
     Dosage: AS NEEDED
     Route: 058
     Dates: start: 20090101
  11. KARDEGIC [Concomitant]
     Indication: THROMBOSIS PROPHYLAXIS
     Dosage: 75 MG
     Route: 048
     Dates: start: 20090922
  12. LOVENOX [Concomitant]
     Indication: THROMBOSIS PROPHYLAXIS
     Dosage: UNKNOWN
     Dates: start: 20090922
  13. LORAZEPAM [Concomitant]
     Indication: INSOMNIA
     Dosage: AS NEEDED
     Route: 048
     Dates: start: 20091009
  14. DEDROGYL [Concomitant]
     Indication: PROPHYLAXIS
     Dosage: 15 MG
     Route: 048
     Dates: start: 20090112
  15. LENALIDOMIDE [Suspect]
     Indication: MULTIPLE MYELOMA
     Dosage: 25 MG
     Route: 048
     Dates: start: 20090922

REACTIONS (2)
  - HIP FRACTURE [None]
  - LOSS OF CONSCIOUSNESS [None]
